FAERS Safety Report 6245880-2 (Version None)
Quarter: 2009Q2

REPORT INFORMATION
  Report Type: 
  Country: None (occurrence: None)
  Receive Date: 20090626
  Receipt Date: 20090618
  Transmission Date: 20091009
  Serious: Yes (Life-Threatening)
  Sender: FDA-Public Use
  Company Number: GB-ELI_LILLY_AND_COMPANY-GB200906004228

PATIENT
  Sex: Female
  Weight: 102 kg

DRUGS (10)
  1. BYETTA [Suspect]
     Dosage: 5 UG, UNKNOWN
     Route: 058
     Dates: start: 20090515, end: 20090611
  2. AMITRIPTYLINE HCL [Concomitant]
     Dosage: UNK, UNKNOWN
     Route: 065
  3. ASPIRIN [Concomitant]
     Dosage: UNK, UNKNOWN
     Route: 065
  4. ATORVASTATIN CALCIUM [Concomitant]
     Dosage: UNK, UNKNOWN
     Route: 065
  5. BENDROFLUMETHIAZIDE [Concomitant]
     Dosage: UNK, UNKNOWN
     Route: 065
  6. CETIRIZINE HYDROCHLORIDE [Concomitant]
     Dosage: UNK, UNKNOWN
     Route: 065
  7. GABAPENTIN [Concomitant]
     Dosage: UNK, UNKNOWN
     Route: 065
  8. GLIMEPIRIDE [Concomitant]
     Dosage: UNK, UNKNOWN
     Route: 065
  9. METFORMIN HYDROCHLORIDE [Concomitant]
     Dosage: UNK, UNKNOWN
     Route: 065
  10. TRISEQUENS /00441501/ [Concomitant]
     Dosage: UNK, UNKNOWN
     Route: 065

REACTIONS (10)
  - ANAPHYLACTIC REACTION [None]
  - CHEST DISCOMFORT [None]
  - DYSPNOEA [None]
  - INJECTION SITE ERYTHEMA [None]
  - INJECTION SITE SWELLING [None]
  - LYMPHADENOPATHY [None]
  - PHARYNGEAL OEDEMA [None]
  - PRURITUS [None]
  - SWOLLEN TONGUE [None]
  - URTICARIA [None]
